FAERS Safety Report 5097029-X (Version None)
Quarter: 2006Q3

REPORT INFORMATION
  Report Type: 
  Country: None (occurrence: None)
  Receive Date: 20060901
  Receipt Date: 20060821
  Transmission Date: 20061208
  Serious: Yes (Other)
  Sender: FDA-Public Use
  Company Number: 2006101762

PATIENT
  Age: 30 Year
  Sex: Female
  Weight: 63.5 kg

DRUGS (2)
  1. MEDROXYPROGESTERONE ACETATE [Suspect]
     Indication: ENDOMETRIOSIS
     Dosage: (DAILY), ORAL
     Route: 048
     Dates: start: 19930604
  2. LOFEPRAMINE (LOFEPRAMINE) [Concomitant]

REACTIONS (1)
  - TACHYCARDIA [None]
